FAERS Safety Report 25475144 (Version 1)
Quarter: 2025Q2

REPORT INFORMATION
  Report Type: Spontaneous
  Country: GR (occurrence: GR)
  Receive Date: 20250624
  Receipt Date: 20250624
  Transmission Date: 20250717
  Serious: Yes (Hospitalization, Other)
  Sender: MYLAN
  Company Number: GR-BBM-GR-BBM-202502220

PATIENT
  Age: 28 Year
  Sex: Female
  Weight: 57 kg

DRUGS (4)
  1. REMIFENTANIL [Suspect]
     Active Substance: REMIFENTANIL
     Indication: Maintenance of anaesthesia
  2. PROPOFOL [Suspect]
     Active Substance: PROPOFOL
     Indication: Induction of anaesthesia
  3. ROCURONIUM [Suspect]
     Active Substance: ROCURONIUM BROMIDE
     Indication: Induction of anaesthesia
  4. SEVOFLURANE [Suspect]
     Active Substance: SEVOFLURANE
     Indication: Maintenance of anaesthesia

REACTIONS (2)
  - Postpartum haemorrhage [Recovered/Resolved]
  - Maternal exposure during delivery [Recovered/Resolved]
